FAERS Safety Report 5731634-X (Version None)
Quarter: 2008Q2

REPORT INFORMATION
  Report Type: 
  Country: None (occurrence: None)
  Receive Date: 20080508
  Receipt Date: 20080428
  Transmission Date: 20081010
  Serious: Yes (Other)
  Sender: FDA-Public Use
  Company Number: PHHY2008AR06894

PATIENT
  Age: 78 Year
  Sex: Female

DRUGS (5)
  1. DIGOXIN [Concomitant]
  2. ALPRAZOLAM [Concomitant]
  3. ATENOLOL [Concomitant]
  4. DIOVAN [Suspect]
     Indication: HYPERTENSION
     Dosage: 80 MG, QD
     Route: 048
     Dates: start: 20050705
  5. DIOVAN [Suspect]
     Dosage: 160MG DAILY
     Route: 048

REACTIONS (5)
  - DEEP VEIN THROMBOSIS [None]
  - HAEMATEMESIS [None]
  - HYPERTENSION [None]
  - ULCER [None]
  - VASCULAR RUPTURE [None]
